FAERS Safety Report 4475548-4 (Version None)
Quarter: 2004Q4

REPORT INFORMATION
  Report Type: 
  Country: None (occurrence: None)
  Receive Date: 20041014
  Receipt Date: 20041014
  Transmission Date: 20050328
  Serious: Yes (Hospitalization)
  Sender: FDA-Public Use
  Company Number: None

PATIENT
  Age: 31 Year
  Sex: Male
  Weight: 85 kg

DRUGS (1)
  1. REMICADE [Suspect]
     Indication: PSORIATIC ARTHROPATHY

REACTIONS (15)
  - AORTIC VALVE DISEASE [None]
  - BACTERAEMIA [None]
  - CARDIAC VALVE DISEASE [None]
  - CHILLS [None]
  - DIARRHOEA [None]
  - DIZZINESS [None]
  - HEADACHE [None]
  - HYPERHIDROSIS [None]
  - IMMUNOSUPPRESSION [None]
  - MENINGITIS [None]
  - NAUSEA [None]
  - PAIN [None]
  - PYREXIA [None]
  - SEPSIS [None]
  - VOMITING [None]
